FAERS Safety Report 6168904-X (Version None)
Quarter: 2009Q2

REPORT INFORMATION
  Report Type: 
  Country: None (occurrence: None)
  Receive Date: 20090427
  Receipt Date: 20090415
  Transmission Date: 20091009
  Serious: Yes (Other)
  Sender: FDA-Public Use
  Company Number: PHHY2009BR14197

PATIENT
  Sex: Female

DRUGS (3)
  1. FORASEQ [Suspect]
     Indication: LUNG DISORDER
     Dosage: 12/200 MCG
     Dates: start: 20081111
  2. FORASEQ [Suspect]
     Dosage: 12/200 MCG
  3. DIOVAN HCT [Suspect]
     Indication: BLOOD PRESSURE ABNORMAL
     Dosage: 1 TABLET/DAY
     Route: 048

REACTIONS (4)
  - LUNG DISORDER [None]
  - PNEUMONIA [None]
  - PRURITUS [None]
  - UMBILICAL HERNIA [None]
